FAERS Safety Report 7099309-5 (Version None)
Quarter: 2010Q4

REPORT INFORMATION
  Report Type: 
  Country: None (occurrence: None)
  Receive Date: 20101112
  Receipt Date: 20101104
  Transmission Date: 20110411
  Serious: Yes (Other)
  Sender: FDA-Public Use
  Company Number: PHFR2010GB05188

PATIENT

DRUGS (1)
  1. NEORAL [Suspect]

REACTIONS (2)
  - BREAST SWELLING [None]
  - GALLBLADDER DISORDER [None]
